FAERS Safety Report 12264885 (Version 1)
Quarter: 2016Q2

REPORT INFORMATION
  Report Type: Spontaneous
  Country: US (occurrence: US)
  Receive Date: 20160413
  Receipt Date: 20160413
  Transmission Date: 20160815
  Serious: No
  Sender: FDA-Public Use
  Company Number: US-JNJFOC-20160310672

PATIENT
  Age: 7 Year
  Sex: Male
  Weight: 26.31 kg

DRUGS (1)
  1. TYLENOL EXTRA STRENGTH [Suspect]
     Active Substance: ACETAMINOPHEN
     Indication: PYREXIA
     Dosage: ONCE
     Route: 048
     Dates: start: 20160309

REACTIONS (1)
  - Drug administered to patient of inappropriate age [Unknown]
